FAERS Safety Report 13601454 (Version 6)
Quarter: 2020Q2

REPORT INFORMATION
  Report Type: Report from Study
  Country: AU (occurrence: AU)
  Receive Date: 20170601
  Receipt Date: 20200515
  Transmission Date: 20200713
  Serious: Yes (Other)
  Sender: FDA-Public Use
  Company Number: AU-JNJFOC-20170528739

PATIENT
  Age: 45 Year
  Sex: Female

DRUGS (1)
  1. STELARA [Suspect]
     Active Substance: USTEKINUMAB
     Indication: PSORIASIS
     Route: 058
     Dates: start: 20170512

REACTIONS (4)
  - Cellulitis [Unknown]
  - Nail pitting [Unknown]
  - Rash [Unknown]
  - Furuncle [Unknown]

NARRATIVE: CASE EVENT DATE: 201705
